FAERS Safety Report 23788167 (Version 1)
Quarter: 2024Q2

REPORT INFORMATION
  Report Type: Spontaneous
  Country: US (occurrence: US)
  Receive Date: 20240426
  Receipt Date: 20240426
  Transmission Date: 20240716
  Serious: Yes (Hospitalization, Other)
  Sender: FDA-Public Use
  Company Number: US-TORRENT-00013536

PATIENT
  Age: 24 Year

DRUGS (1)
  1. TRAZODONE [Suspect]
     Active Substance: TRAZODONE HYDROCHLORIDE
     Indication: Insomnia
     Dosage: 50 MG NIGHTLY
     Route: 065

REACTIONS (4)
  - Disturbance in sexual arousal [Recovered/Resolved]
  - Orgasm abnormal [Recovered/Resolved]
  - Emotional disorder [Recovered/Resolved]
  - Therapy cessation [Unknown]
